FAERS Safety Report 14269478 (Version 1)
Quarter: 2017Q4

REPORT INFORMATION
  Report Type: Spontaneous
  Country: DE (occurrence: DE)
  Receive Date: 20171211
  Receipt Date: 20171211
  Transmission Date: 20180321
  Serious: Yes (Congenital Anomaly, Other)
  Sender: FDA-Public Use
  Company Number: DE-OTSUKA-2016_020926

PATIENT
  Age: 0 Day
  Sex: Female
  Weight: 2.9 kg

DRUGS (4)
  1. FLORADIX [Concomitant]
     Active Substance: IRON
     Indication: PRODUCT USED FOR UNKNOWN INDICATION
     Dosage: UNK
     Route: 064
     Dates: start: 201604
  2. ABILIFY [Suspect]
     Active Substance: ARIPIPRAZOLE
     Indication: PRODUCT USED FOR UNKNOWN INDICATION
     Dosage: 15 MG, QD
     Route: 064
     Dates: start: 201003, end: 20160616
  3. TETESEPT [Concomitant]
     Indication: PRODUCT USED FOR UNKNOWN INDICATION
     Dosage: UNK
     Route: 064
  4. MAGNETRANS [Concomitant]
     Indication: PRODUCT USED FOR UNKNOWN INDICATION
     Dosage: 1 DF, UNK
     Route: 064

REACTIONS (5)
  - Breech presentation [Unknown]
  - Sympathetic posterior cervical syndrome [Unknown]
  - Spinal disorder [Unknown]
  - Foetal exposure during pregnancy [Unknown]
  - Arthropathy [Unknown]

NARRATIVE: CASE EVENT DATE: 20160616
